FAERS Safety Report 8243500-9 (Version None)
Quarter: 2012Q1

REPORT INFORMATION
  Report Type: 
  Country: None (occurrence: None)
  Receive Date: 20120329
  Receipt Date: 20120319
  Transmission Date: 20120608
  Serious: Yes (Death)
  Sender: FDA-Public Use
  Company Number: PHHY2012JP026243

PATIENT
  Sex: Male

DRUGS (1)
  1. DEFERASIROX [Suspect]
     Indication: APLASTIC ANAEMIA
     Dosage: 1500 MG, AILY
     Route: 048
     Dates: start: 20090601, end: 20100501

REACTIONS (1)
  - INFECTION [None]
